FAERS Safety Report 7249298-5 (Version None)
Quarter: 2011Q1

REPORT INFORMATION
  Report Type: 
  Country: None (occurrence: None)
  Receive Date: 20110128
  Receipt Date: 20101210
  Transmission Date: 20110831
  Serious: Yes (Hospitalization, Other)
  Sender: FDA-Public Use
  Company Number: US-BAYER-2010-004175

PATIENT
  Age: 64 Year
  Sex: Male

DRUGS (3)
  1. SORAFENIB (RAF KINASE INHIBITOR) [Suspect]
     Indication: BILE DUCT CANCER
     Dosage: UNK
     Dates: start: 20100831, end: 20101109
  2. GEMCITABINE [Suspect]
     Indication: BILE DUCT CANCER
     Dosage: UNK
     Dates: start: 20100831, end: 20101109
  3. CISPLATIN [Suspect]
     Indication: BILE DUCT CANCER
     Dosage: UNK
     Dates: start: 20100831, end: 20101109

REACTIONS (6)
  - PULMONARY EMBOLISM [None]
  - HICCUPS [None]
  - PLATELET COUNT DECREASED [None]
  - ABDOMINAL PAIN UPPER [None]
  - CONSTIPATION [None]
  - HAEMOPTYSIS [None]
